FAERS Safety Report 6593304-8 (Version None)
Quarter: 2010Q1

REPORT INFORMATION
  Report Type: 
  Country: None (occurrence: None)
  Receive Date: 20100222
  Receipt Date: 20090107
  Transmission Date: 20100710
  Serious: No
  Sender: FDA-Public Use
  Company Number: US-BRISTOL-MYERS SQUIBB COMPANY-14462790

PATIENT
  Age: 45 Year
  Sex: Male

DRUGS (1)
  1. ORENCIA [Suspect]
     Dosage: TAKEN 2 MONTHS AGO TAKEN 2 DOSES

REACTIONS (2)
  - BALANITIS [None]
  - GENITAL ERYTHEMA [None]
